FAERS Safety Report 6331249-9 (Version None)
Quarter: 2009Q3

REPORT INFORMATION
  Report Type: 
  Country: None (occurrence: None)
  Receive Date: 20090827
  Receipt Date: 20090824
  Transmission Date: 20100115
  Serious: Yes (Death)
  Sender: FDA-Public Use
  Company Number: US-MERCK-0908USA02820

PATIENT
  Age: 51 Year
  Sex: Male

DRUGS (8)
  1. ISENTRESS [Suspect]
     Indication: HIV INFECTION
     Route: 048
     Dates: end: 20090813
  2. INTELENCE [Concomitant]
     Route: 065
  3. EPZICOM [Concomitant]
     Route: 065
  4. BACTRIM DS [Concomitant]
     Route: 065
  5. AZITHROMYCIN [Concomitant]
     Route: 065
  6. VALCYTE [Concomitant]
     Route: 065
  7. VORICONAZOLE [Concomitant]
     Route: 065
  8. ENTECAVIR [Concomitant]
     Route: 065

REACTIONS (2)
  - DEHYDRATION [None]
  - WEIGHT DECREASED [None]
